FAERS Safety Report 22063910 (Version 1)
Quarter: 2023Q1

REPORT INFORMATION
  Report Type: Spontaneous
  Country: PL (occurrence: PL)
  Receive Date: 20230306
  Receipt Date: 20230306
  Transmission Date: 20230417
  Serious: Yes (Other)
  Sender: FDA-Public Use
  Company Number: PL-GLAXOSMITHKLINE-PL2023EME033154

PATIENT

DRUGS (2)
  1. JEMPERLI [Suspect]
     Active Substance: DOSTARLIMAB-GXLY
     Indication: Endometrial cancer stage IV
     Dosage: UNK
     Dates: start: 20230105
  2. JEMPERLI [Suspect]
     Active Substance: DOSTARLIMAB-GXLY
     Dosage: UNK
     Dates: start: 20230223

REACTIONS (6)
  - Hypothyroidism [Unknown]
  - Carcinoid tumour of the mesentery [Unknown]
  - Intra-abdominal haemorrhage [Unknown]
  - Abdominal wall neoplasm [Unknown]
  - Drainage [Unknown]
  - Peritoneal adhesions [Unknown]
